FAERS Safety Report 10094591 (Version 2)
Quarter: 2014Q2

REPORT INFORMATION
  Report Type: Spontaneous
  Country: US (occurrence: US)
  Receive Date: 20140422
  Receipt Date: 20140613
  Transmission Date: 20141212
  Serious: No
  Sender: FDA-Public Use
  Company Number: US-PFIZER INC-2014108725

PATIENT
  Age: 52 Year
  Sex: Female
  Weight: 68 kg

DRUGS (2)
  1. PREMARIN [Suspect]
     Indication: HORMONE THERAPY
     Dosage: 2 G, 2X/WEEK
     Route: 067
     Dates: start: 201403, end: 201404
  2. PREMARIN [Suspect]
     Indication: VULVOVAGINAL DRYNESS

REACTIONS (1)
  - Vulvovaginal pain [Not Recovered/Not Resolved]
